FAERS Safety Report 8411744 (Version 8)
Quarter: 2017Q4

REPORT INFORMATION
  Report Type: Spontaneous
  Country: US (occurrence: US)
  Receive Date: 20120217
  Receipt Date: 20171211
  Transmission Date: 20180321
  Serious: Yes (Hospitalization, Disabling, Other)
  Sender: FDA-Public Use
  Company Number: US-009507513-1202USA02465

PATIENT
  Sex: Female
  Weight: 65.32 kg

DRUGS (6)
  1. FOSAMAX [Suspect]
     Active Substance: ALENDRONATE SODIUM
     Indication: OSTEOPENIA
  2. SYNTHROID [Concomitant]
     Active Substance: LEVOTHYROXINE SODIUM
     Indication: HYPOTHYROIDISM
  3. FOSAMAX [Suspect]
     Active Substance: ALENDRONATE SODIUM
     Indication: OSTEOPOROSIS
     Dosage: 10 MG, QD
     Route: 048
     Dates: start: 19960327, end: 20010315
  4. FOSAMAX [Suspect]
     Active Substance: ALENDRONATE SODIUM
     Indication: OSTEOPENIA
     Dosage: 70 MG, QW
     Route: 048
     Dates: start: 20040618, end: 20060208
  5. FOSAMAX [Suspect]
     Active Substance: ALENDRONATE SODIUM
     Indication: OSTEOPOROSIS
     Dosage: 70 MG, QW
     Route: 048
     Dates: start: 20010222, end: 20040117
  6. OGEN [Concomitant]
     Active Substance: ESTROPIPATE
     Dates: start: 1993, end: 200506

REACTIONS (47)
  - Fracture nonunion [Recovered/Resolved]
  - Overdose [Unknown]
  - Foot fracture [Unknown]
  - Onychomycosis [Unknown]
  - Chest discomfort [Unknown]
  - Urinary tract infection [Not Recovered/Not Resolved]
  - Oral candidiasis [Unknown]
  - Gastrooesophageal reflux disease [Unknown]
  - Dental caries [Unknown]
  - Exostosis [Unknown]
  - Urinary tract infection [Not Recovered/Not Resolved]
  - Depression [Unknown]
  - Fatigue [Unknown]
  - Allergy to vaccine [Unknown]
  - Appendicitis [Unknown]
  - Femur fracture [Recovered/Resolved]
  - Eosinophilic oesophagitis [Unknown]
  - Drug hypersensitivity [Unknown]
  - Complication associated with device [Unknown]
  - Tooth disorder [Unknown]
  - Intervertebral disc space narrowing [Unknown]
  - Laryngitis [Unknown]
  - Fibroadenoma of breast [Unknown]
  - Pneumonia [Unknown]
  - Urinary incontinence [Unknown]
  - Bartholin^s cyst [Unknown]
  - Blood cholesterol increased [Unknown]
  - Pharyngitis [Unknown]
  - Anxiety [Unknown]
  - Blood pressure increased [Unknown]
  - Atrophic vulvovaginitis [Unknown]
  - Memory impairment [Unknown]
  - Gastric polyps [Unknown]
  - Low turnover osteopathy [Not Recovered/Not Resolved]
  - Hypersensitivity [Unknown]
  - Lymphadenopathy [Unknown]
  - Panic attack [Unknown]
  - Cellulitis [Unknown]
  - Osteoarthritis [Unknown]
  - Lung disorder [Unknown]
  - Oedema peripheral [Unknown]
  - Osteoarthritis [Unknown]
  - Tooth disorder [Unknown]
  - Tooth infection [Unknown]
  - Laceration [Unknown]
  - Herpes simplex [Unknown]
  - Irritable bowel syndrome [Unknown]

NARRATIVE: CASE EVENT DATE: 19970217
